FAERS Safety Report 6678059-0 (Version None)
Quarter: 2010Q2

REPORT INFORMATION
  Report Type: 
  Country: None (occurrence: None)
  Receive Date: 20100412
  Receipt Date: 20100405
  Transmission Date: 20101027
  Serious: Yes (Hospitalization)
  Sender: FDA-Public Use
  Company Number: PHHO2010US05332

PATIENT
  Sex: Male

DRUGS (6)
  1. MYFORTIC [Suspect]
     Indication: RENAL TRANSPLANT
     Dosage: 720  MG/DAY
     Route: 048
  2. BELATACEPT [Suspect]
     Indication: RENAL TRANSPLANT
     Route: 042
  3. PREDNISOLONE [Concomitant]
  4. BACTRIM [Concomitant]
  5. DIOVAN [Concomitant]
  6. EFFEXOR XR [Concomitant]

REACTIONS (2)
  - NEPHRECTOMY [None]
  - RENAL MASS [None]
